FAERS Safety Report 9745337 (Version 2)
Quarter: 2014Q1

REPORT INFORMATION
  Report Type: Spontaneous
  Country: NO (occurrence: NO)
  Receive Date: 20131211
  Receipt Date: 20140121
  Transmission Date: 20141002
  Serious: Yes (Death, Life-Threatening)
  Sender: FDA-Public Use
  Company Number: NO-JNJFOC-20131204536

PATIENT
  Age: 20 Year
  Sex: Female

DRUGS (21)
  1. NOBLIGAN [Suspect]
     Indication: DEPRESSION
     Route: 065
  2. TRAMADOL HYDROCHLORIDE [Suspect]
     Indication: DEPRESSION
     Route: 065
  3. CATAPRESSAN (CLONIDINE) [Suspect]
     Indication: DEPRESSION
     Route: 065
  4. CIPRAMIL [Suspect]
     Indication: PRODUCT USED FOR UNKNOWN INDICATION
     Route: 065
  5. RIVOTRIL [Suspect]
     Indication: DEPRESSION
     Route: 065
  6. NOZINAN [Suspect]
     Indication: DEPRESSION
     Route: 065
  7. SOBRIL [Suspect]
     Indication: PRODUCT USED FOR UNKNOWN INDICATION
     Route: 065
  8. CIPRALEX [Suspect]
     Indication: DEPRESSION
     Route: 065
  9. IMOVANE [Suspect]
     Indication: DEPRESSION
     Route: 048
  10. ORFIRIL [Suspect]
     Indication: DEPRESSION
     Route: 065
  11. OXYNORM [Suspect]
     Indication: DEPRESSION
     Route: 065
  12. REMERON [Suspect]
     Indication: DEPRESSION
     Route: 065
  13. ATARAX [Suspect]
     Indication: DEPRESSION
     Route: 065
  14. TRUXAL [Suspect]
     Indication: PRODUCT USED FOR UNKNOWN INDICATION
     Route: 065
  15. PINEX FORTE [Suspect]
     Indication: DEPRESSION
     Route: 065
  16. VIVAL [Suspect]
     Indication: DEPRESSION
     Route: 065
  17. LAMICTAL [Suspect]
     Indication: DEPRESSION
     Route: 065
  18. SAROTEX [Suspect]
     Indication: DEPRESSION
     Route: 065
  19. SEROQUEL [Suspect]
     Indication: DEPRESSION
     Route: 065
  20. DIAMORPHINE [Concomitant]
     Indication: PRODUCT USED FOR UNKNOWN INDICATION
     Route: 065
  21. CYANOCOBALAMIN [Concomitant]
     Indication: PRODUCT USED FOR UNKNOWN INDICATION
     Route: 065

REACTIONS (2)
  - Completed suicide [Fatal]
  - Self injurious behaviour [Unknown]
